FAERS Safety Report 6389180-9 (Version None)
Quarter: 2009Q4

REPORT INFORMATION
  Report Type: 
  Country: None (occurrence: None)
  Receive Date: 20091001
  Receipt Date: 20090730
  Transmission Date: 20100525
  Serious: Yes (Hospitalization)
  Sender: FDA-Public Use
  Company Number: US-000697

PATIENT
  Sex: Female

DRUGS (3)
  1. PROGESTERONE [Suspect]
     Indication: INFERTILITY
     Dosage: 100 MG BID VAGINAL
     Route: 067
     Dates: start: 20090727, end: 20090729
  2. PROGESTERONE [Suspect]
     Indication: LUTEAL PHASE DEFICIENCY
     Dosage: 100 MG BID VAGINAL
     Route: 067
     Dates: start: 20090727, end: 20090729
  3. VITAMINS [Concomitant]

REACTIONS (3)
  - BURNING SENSATION [None]
  - PARAESTHESIA [None]
  - PRURITUS [None]
